FAERS Safety Report 10296538 (Version 2)
Quarter: 2014Q4

REPORT INFORMATION
  Report Type: Spontaneous
  Country: JP (occurrence: JP)
  Receive Date: 20140710
  Receipt Date: 20141024
  Transmission Date: 20150528
  Serious: Yes (Death)
  Sender: FDA-Public Use
  Company Number: PHHY2008JP045069

PATIENT
  Age: 60 Year
  Sex: Male

DRUGS (3)
  1. GLIVEC [Suspect]
     Active Substance: IMATINIB MESYLATE
     Dosage: 200 MG
     Route: 065
     Dates: start: 20020406, end: 20020502
  2. GLIVEC [Suspect]
     Active Substance: IMATINIB MESYLATE
     Indication: CHRONIC MYELOID LEUKAEMIA
     Dosage: 200 MG
     Route: 065
     Dates: start: 20020220, end: 20020326
  3. GLIVEC [Suspect]
     Active Substance: IMATINIB MESYLATE
     Dosage: INCREASED TO 300 TO 400 MG
     Route: 065
     Dates: start: 20020503

REACTIONS (1)
  - Death [Fatal]

NARRATIVE: CASE EVENT DATE: 20090907
